FAERS Safety Report 9282428 (Version 4)
Quarter: 2013Q2

REPORT INFORMATION
  Report Type: Report from Study
  Country: US (occurrence: US)
  Receive Date: 20130510
  Receipt Date: 20130529
  Transmission Date: 20140414
  Serious: Yes (Hospitalization)
  Sender: FDA-Public Use
  Company Number: US-009507513-1305USA005084

PATIENT
  Age: 44 Year
  Sex: Male
  Weight: 111 kg

DRUGS (10)
  1. VICTRELIS [Suspect]
     Indication: HEPATITIS C
     Dosage: 2400 MILLIGRAMS, UNK
     Dates: start: 20120407
  2. REBETOL [Suspect]
     Indication: HEPATITIS C
     Dosage: 400 MG, UNK
     Dates: start: 20120310
  3. PEGINTERFERON ALFA-2A [Suspect]
     Indication: HEPATITIS C
     Dosage: 90 MICROGRAM, UNK
     Dates: start: 20120310
  4. XIFAXAN [Concomitant]
  5. LACTULOSE [Concomitant]
  6. LASIX (FUROSEMIDE) [Concomitant]
     Route: 042
  7. SPIRONOLACTONE [Concomitant]
  8. METOLAZONE [Concomitant]
     Dosage: 2.5 MG, QW
  9. METFORMIN [Concomitant]
  10. PRANDIN [Concomitant]

REACTIONS (2)
  - Wound infection [Recovered/Resolved with Sequelae]
  - Hepatic encephalopathy [Recovered/Resolved]
